FAERS Safety Report 16737402 (Version 1)
Quarter: 2019Q3

REPORT INFORMATION
  Report Type: Spontaneous
  Country: US (occurrence: US)
  Receive Date: 20190823
  Receipt Date: 20190823
  Transmission Date: 20191005
  Serious: No
  Sender: FDA-Public Use
  Company Number: US-HORIZON-PEN-0770-2019

PATIENT
  Sex: Male

DRUGS (1)
  1. PENNSAID [Suspect]
     Active Substance: DICLOFENAC SODIUM
     Indication: ARTHRALGIA
     Dates: start: 201908

REACTIONS (2)
  - Skin mass [Not Recovered/Not Resolved]
  - Rash [Not Recovered/Not Resolved]
